FAERS Safety Report 8778905 (Version 4)
Quarter: 2013Q2

REPORT INFORMATION
  Report Type: Report from Study
  Country: US (occurrence: US)
  Receive Date: 20120912
  Receipt Date: 20130604
  Transmission Date: 20140414
  Serious: Yes (Other)
  Sender: FDA-Public Use
  Company Number: PHEH2012US017344

PATIENT
  Age: 71 Year
  Sex: Female

DRUGS (2)
  1. GLEEVEC [Suspect]
     Indication: CHRONIC MYELOID LEUKAEMIA
     Dosage: 400 MG, DAILY
     Route: 048
     Dates: start: 20120329
  2. GLEEVEC [Suspect]
     Dosage: UNK
     Route: 048
     Dates: start: 20120904

REACTIONS (8)
  - Upper limb fracture [Unknown]
  - Cardiac failure [Unknown]
  - Fall [Unknown]
  - Dry skin [Unknown]
  - Vaginal haemorrhage [Unknown]
  - Muscle spasms [Unknown]
  - Asthenia [Unknown]
  - Depression [Unknown]
